FAERS Safety Report 13347673 (Version 2)
Quarter: 2017Q4

REPORT INFORMATION
  Report Type: Report from Study
  Country: US (occurrence: US)
  Receive Date: 20170317
  Receipt Date: 20171004
  Transmission Date: 20180320
  Serious: Yes (Death, Hospitalization)
  Sender: FDA-Public Use
  Company Number: US-ACTELION-A-US2015-118898

PATIENT
  Age: 74 Year
  Sex: Female
  Weight: 95.24 kg

DRUGS (5)
  1. TRACLEER [Suspect]
     Active Substance: BOSENTAN
     Dosage: 125 MG, BID
     Route: 048
  2. DILTIAZEM. [Concomitant]
     Active Substance: DILTIAZEM
  3. KEPPRA [Concomitant]
     Active Substance: LEVETIRACETAM
  4. COUMADIN [Concomitant]
     Active Substance: WARFARIN SODIUM
     Indication: PULMONARY HYPERTENSION
  5. TRACLEER [Suspect]
     Active Substance: BOSENTAN
     Indication: PULMONARY ARTERIAL HYPERTENSION
     Dosage: 125 MG, BID
     Route: 048
     Dates: start: 20060208

REACTIONS (9)
  - Memory impairment [Unknown]
  - Pulmonary arterial hypertension [Fatal]
  - Heart rate abnormal [Unknown]
  - Cough [Unknown]
  - Lung neoplasm malignant [Fatal]
  - Muscle spasms [Unknown]
  - Rhinorrhoea [Unknown]
  - Restless legs syndrome [Unknown]
  - Lethargy [Unknown]
